FAERS Safety Report 23284375 (Version 1)
Quarter: 2023Q4

REPORT INFORMATION
  Report Type: Spontaneous
  Country: US (occurrence: US)
  Receive Date: 20231211
  Receipt Date: 20231211
  Transmission Date: 20240110
  Serious: No
  Sender: FDA-Public Use
  Company Number: US-PFIZER INC-202300426545

PATIENT
  Sex: Male

DRUGS (9)
  1. XELJANZ XR [Suspect]
     Active Substance: TOFACITINIB CITRATE
     Dosage: 11MG
  2. FOLIC ACID [Concomitant]
     Active Substance: FOLIC ACID
  3. DICLOFENAC [Concomitant]
     Active Substance: DICLOFENAC
  4. FINASTERIDE [Concomitant]
     Active Substance: FINASTERIDE
  5. HYDROCHLOROTHIAZIDE [Concomitant]
     Active Substance: HYDROCHLOROTHIAZIDE
  6. METHOTREXATE [Concomitant]
     Active Substance: METHOTREXATE
  7. METOPROLOL [Concomitant]
     Active Substance: METOPROLOL
  8. ROSUVASTATIN [Concomitant]
     Active Substance: ROSUVASTATIN
  9. TAMSULOSIN [Concomitant]
     Active Substance: TAMSULOSIN

REACTIONS (2)
  - Gastrointestinal disorder [Unknown]
  - Product residue present [Unknown]
